FAERS Safety Report 19273234 (Version 3)
Quarter: 2022Q1

REPORT INFORMATION
  Report Type: Spontaneous
  Country: US (occurrence: US)
  Receive Date: 20210519
  Receipt Date: 20220308
  Transmission Date: 20220424
  Serious: No
  Sender: FDA-Public Use
  Company Number: US-BIOGEN-2021BI00966969

PATIENT
  Age: 62 Year
  Sex: Female

DRUGS (3)
  1. TYSABRI [Suspect]
     Active Substance: NATALIZUMAB
     Indication: Multiple sclerosis
     Route: 065
     Dates: start: 20130523, end: 20201202
  2. TYSABRI [Suspect]
     Active Substance: NATALIZUMAB
     Route: 065
     Dates: end: 20201230
  3. TYSABRI [Suspect]
     Active Substance: NATALIZUMAB
     Route: 065
     Dates: start: 20130523, end: 20211208

REACTIONS (10)
  - Prescribed underdose [Unknown]
  - Hemiparesis [Unknown]
  - Infection [Recovered/Resolved]
  - Multiple sclerosis [Not Recovered/Not Resolved]
  - Eosinophil count increased [Unknown]
  - White blood cell count increased [Unknown]
  - Hypersensitivity [Recovered/Resolved]
  - Vomiting [Unknown]
  - Asthenia [Unknown]
  - Depressed mood [Unknown]

NARRATIVE: CASE EVENT DATE: 20201201
